FAERS Safety Report 6295826-6 (Version None)
Quarter: 2009Q3

REPORT INFORMATION
  Report Type: 
  Country: None (occurrence: None)
  Receive Date: 20090804
  Receipt Date: 20090727
  Transmission Date: 20100115
  Serious: Yes (Other)
  Sender: FDA-Public Use
  Company Number: JP-PFIZER INC-2009246001

PATIENT
  Age: 58 Year

DRUGS (5)
  1. GABAPENTIN [Suspect]
     Indication: CANCER PAIN
     Dosage: UNK
     Route: 048
  2. MORPHINE SULFATE [Suspect]
     Route: 048
  3. MORPHINE HCL ELIXIR [Suspect]
     Dosage: UNK
     Route: 058
  4. FENTANYL CITRATE [Suspect]
     Indication: CANCER PAIN
     Route: 062
  5. KETAMINE HCL [Suspect]
     Indication: CANCER PAIN
     Route: 058

REACTIONS (3)
  - DELIRIUM [None]
  - DRUG INEFFECTIVE [None]
  - SOMNOLENCE [None]
